FAERS Safety Report 15225042 (Version 1)
Quarter: 2018Q3

REPORT INFORMATION
  Report Type: Spontaneous
  Country: US (occurrence: US)
  Receive Date: 20180801
  Receipt Date: 20180801
  Transmission Date: 20181010
  Serious: No
  Sender: FDA-Public Use
  Company Number: US-TEVA-2018-US-933781

PATIENT
  Sex: Male

DRUGS (2)
  1. QVAR REDIHALER [Suspect]
     Active Substance: BECLOMETHASONE DIPROPIONATE
     Indication: CHRONIC OBSTRUCTIVE PULMONARY DISEASE
     Route: 065
     Dates: start: 201806
  2. QVAR [Suspect]
     Active Substance: BECLOMETHASONE DIPROPIONATE
     Indication: CHRONIC OBSTRUCTIVE PULMONARY DISEASE
     Dosage: TWO PUFFS TWICE DAILY
     Route: 065
     Dates: start: 201806

REACTIONS (2)
  - Oral pain [Unknown]
  - Drug prescribing error [Unknown]

NARRATIVE: CASE EVENT DATE: 20180723
